FAERS Safety Report 4815809-X (Version None)
Quarter: 2005Q4

REPORT INFORMATION
  Report Type: 
  Country: None (occurrence: None)
  Receive Date: 20051031
  Receipt Date: 20051019
  Transmission Date: 20060501
  Serious: Yes (Life-Threatening, Hospitalization)
  Sender: FDA-Public Use
  Company Number: MY-MERCK-0510MYS00014

PATIENT
  Age: 57 Year
  Sex: Female
  Weight: 53 kg

DRUGS (2)
  1. FOSAMAX [Suspect]
     Indication: OSTEOPOROSIS POSTMENOPAUSAL
     Route: 048
     Dates: start: 20040101, end: 20050101
  2. FOSAMAX [Suspect]
     Route: 048
     Dates: start: 20050101, end: 20051001

REACTIONS (3)
  - GASTRIC ULCER HAEMORRHAGE [None]
  - GASTRITIS [None]
  - INAPPROPRIATE SCHEDULE OF DRUG ADMINISTRATION [None]
